FAERS Safety Report 7801322-4 (Version None)
Quarter: 2011Q4

REPORT INFORMATION
  Report Type: 
  Country: None (occurrence: None)
  Receive Date: 20111006
  Receipt Date: 20111006
  Transmission Date: 20120403
  Serious: Yes (Hospitalization)
  Sender: FDA-Public Use
  Company Number: None

PATIENT
  Age: 80 Year
  Sex: Female
  Weight: 84.7 kg

DRUGS (9)
  1. ASPIRIN [Suspect]
     Indication: CORONARY ARTERY DISEASE
     Dosage: 81MG DAILY PO CHRONIC
     Route: 048
  2. LUTEIN [Concomitant]
  3. TRIAMTERENE AND HYDROCHLOROTHIAZIDE [Concomitant]
  4. NORCO [Concomitant]
  5. WARFARIN SODIUM [Suspect]
     Indication: ATRIAL FIBRILLATION
     Dosage: 4.5MG SMWTHF/ 3MG TSA PO  CHRONIC
     Route: 048
  6. ATENOLOL [Concomitant]
  7. MULTIVITAMIN [Concomitant]
  8. MIRALAX [Concomitant]
  9. CALCIUM CARBONATE [Concomitant]

REACTIONS (8)
  - INTERNATIONAL NORMALISED RATIO INCREASED [None]
  - HAEMORRHAGE [None]
  - LIMB INJURY [None]
  - MUSCLE HAEMORRHAGE [None]
  - FALL [None]
  - LACERATION [None]
  - ANAEMIA [None]
  - SMALL INTESTINAL OBSTRUCTION [None]
